FAERS Safety Report 21588481 (Version 2)
Quarter: 2022Q4

REPORT INFORMATION
  Report Type: Spontaneous
  Country: FR (occurrence: FR)
  Receive Date: 20221114
  Receipt Date: 20221230
  Transmission Date: 20230112
  Serious: Yes (Other)
  Sender: FDA-Public Use
  Company Number: FR-ORGANON-O2211FRA000613

PATIENT
  Sex: Female

DRUGS (3)
  1. SINEMET [Suspect]
     Active Substance: CARBIDOPA\LEVODOPA
     Dosage: 6 TABLETS, 1 TABLET PER DOSE, ONE TABLET TAKEN EVERY 3 HOURS
     Route: 048
     Dates: start: 2021
  2. SINEMET [Suspect]
     Active Substance: CARBIDOPA\LEVODOPA
     Dosage: 3 TABLETS, TAKING 1/2 TABLET OF SINEMET 10/100MG EVERY 3 HOURS
     Route: 048
  3. HERBALS [Concomitant]
     Active Substance: HERBALS
     Dosage: UNK

REACTIONS (12)
  - Loss of control of legs [Unknown]
  - Pain [Unknown]
  - Gastrointestinal disorder [Unknown]
  - Gait disturbance [Unknown]
  - Poor quality sleep [Unknown]
  - Burning sensation [Recovering/Resolving]
  - Dysstasia [Unknown]
  - Soft tissue disorder [Unknown]
  - Abdominal discomfort [Unknown]
  - Abdominal pain upper [Unknown]
  - Drug intolerance [Unknown]
  - Wrong technique in product usage process [Unknown]
